FAERS Safety Report 9611474 (Version 3)
Quarter: 2014Q1

REPORT INFORMATION
  Report Type: Report from Study
  Country: JP (occurrence: JP)
  Receive Date: 20131010
  Receipt Date: 20140102
  Transmission Date: 20141002
  Serious: Yes (Other)
  Sender: FDA-Public Use
  Company Number: JP-009507513-1305JPN006423

PATIENT
  Age: 50 Year
  Sex: Female
  Weight: 51 kg

DRUGS (17)
  1. REBETOL [Suspect]
     Indication: CHRONIC HEPATITIS C
     Dosage: 200 MG, BID
     Route: 048
     Dates: start: 20110228, end: 20110303
  2. REBETOL [Suspect]
     Dosage: 600 MG (200MG IN MORNING; 400MG IN EVENING)
     Route: 048
     Dates: start: 20110304, end: 20110914
  3. REBETOL [Suspect]
     Dosage: 200 MG, BID
     Route: 048
     Dates: start: 20110915, end: 20120229
  4. REBETOL [Suspect]
     Dosage: 600 MG,  (DIVIDED DOSE FREQUENCY UNKNOWN)
     Route: 048
     Dates: start: 20121206, end: 20130501
  5. REBETOL [Suspect]
     Dosage: 400 MG, (DIVIDED DOSE FREQUENCY UNKNOWN)
     Route: 048
     Dates: start: 20130502
  6. PEGINTRON [Suspect]
     Indication: CHRONIC HEPATITIS C
     Dosage: 60 MICROGRAM, QW(DIVIDED DOSE FREQUENCY UNKNOWN)
     Route: 058
     Dates: start: 20121206
  7. FERON [Suspect]
     Indication: CHRONIC HEPATITIS C
     Dosage: 6 MILLION-BILLION UNIT, QD
     Route: 041
     Dates: start: 20110228, end: 20110301
  8. FERON [Suspect]
     Dosage: 4 MILLION-BILLION UNIT, QD
     Route: 041
     Dates: start: 20110302, end: 20110307
  9. FERON [Suspect]
     Dosage: 6 MILLION-BILLION UNIT, QD
     Route: 041
     Dates: start: 20110309, end: 20110913
  10. FERON [Suspect]
     Dosage: 4 MILLION-BILLION UNIT, QD
     Route: 041
     Dates: start: 20110915, end: 20120229
  11. URSO [Concomitant]
     Indication: CHRONIC HEPATITIS C
     Dosage: 400 MG, QD(DIVIDED DOSE FREQUENCY UNKNOWN)
     Route: 048
     Dates: end: 20110420
  12. URSO [Concomitant]
     Dosage: 600 MG, QD(DIVIDED DOSE FREQUENCY UNKNOWN)
     Route: 048
     Dates: start: 20120412, end: 20120516
  13. URSO [Concomitant]
     Dosage: 900 MG, QD(DIVIDED DOSE FREQUENCY UNKNOWN)
     Route: 048
     Dates: start: 20120517
  14. FAMOTIDINE [Concomitant]
     Indication: GASTRITIS PROPHYLAXIS
     Dosage: 20 MG, QD (DIVIDED DOSE FREQUENCY UNKNOWN)
     Route: 048
     Dates: start: 20110228, end: 20120229
  15. LOXONIN [Concomitant]
     Indication: PROPHYLAXIS
     Dosage: 60 MG(SINGLE USE)
     Route: 048
     Dates: start: 20110228, end: 20120229
  16. MUCOSTA [Concomitant]
     Indication: GASTRITIS PROPHYLAXIS
     Dosage: 100 MG(SINGLE USE)
     Route: 048
     Dates: start: 20110228, end: 20120229
  17. NEO-MINOPHAGEN C [Concomitant]
     Indication: CHRONIC HEPATITIS C
     Dosage: 40 ML, Q3W
     Route: 042
     Dates: start: 20120412, end: 20121130

REACTIONS (4)
  - Neutrophil count decreased [Recovering/Resolving]
  - Pyrexia [Recovered/Resolved]
  - Neutrophil count decreased [Recovering/Resolving]
  - Haemoglobin decreased [Recovering/Resolving]
